FAERS Safety Report 10227142 (Version 1)
Quarter: 2014Q2

REPORT INFORMATION
  Report Type: Spontaneous
  Country: FR (occurrence: None)
  Receive Date: 20140606
  Receipt Date: 20140606
  Transmission Date: 20141212
  Serious: Yes (Death, Life-Threatening)
  Sender: FDA-Public Use
  Company Number: FR-2014-2090

PATIENT
  Age: 47 Year
  Sex: Male

DRUGS (4)
  1. NAVELBINE [Suspect]
     Indication: NON-SMALL CELL LUNG CANCER
     Dosage: CYCLICAL
     Route: 042
     Dates: start: 201402, end: 20140418
  2. CISPLATIN (CISPLATIN) [Suspect]
     Indication: NON-SMALL CELL LUNG CANCER
     Dosage: CYCLICAL
     Route: 042
     Dates: start: 201402, end: 20140418
  3. INNOHEP (TINZAPARIN SODIUM) [Concomitant]
  4. DOMPERIDONE (DOMPERIDONE) [Concomitant]

REACTIONS (1)
  - Hepatitis acute [None]
